FAERS Safety Report 7484395-0 (Version None)
Quarter: 2011Q2

REPORT INFORMATION
  Report Type: 
  Country: None (occurrence: None)
  Receive Date: 20110517
  Receipt Date: 20100423
  Transmission Date: 20111010
  Serious: Yes (Hospitalization, Other)
  Sender: FDA-Public Use
  Company Number: US-BAYER-200928619NA

PATIENT
  Age: 41 Year
  Sex: Female
  Weight: 107.48 kg

DRUGS (6)
  1. MOTRIN [Concomitant]
     Dosage: VARIOUS DATES SINCE 1992
     Dates: start: 19920101
  2. IBUPROFEN [Concomitant]
  3. PHENTERMINE [Concomitant]
     Indication: WEIGHT DECREASED
     Dosage: UNK
     Dates: start: 20101215
  4. TPN [Concomitant]
     Dosage: UNK
     Dates: start: 20101201
  5. YAZ [Suspect]
     Indication: PRODUCT USED FOR UNKNOWN INDICATION
     Route: 048
     Dates: start: 20070501
  6. SPIRONOLACTONE [Concomitant]
     Dosage: UNK
     Dates: start: 20100606

REACTIONS (5)
  - DEEP VEIN THROMBOSIS [None]
  - PULMONARY EMBOLISM [None]
  - OEDEMA PERIPHERAL [None]
  - DYSPNOEA [None]
  - PAIN IN EXTREMITY [None]
